FAERS Safety Report 5986887-X (Version None)
Quarter: 2008Q4

REPORT INFORMATION
  Report Type: 
  Country: None (occurrence: None)
  Receive Date: 20081209
  Receipt Date: 20081125
  Transmission Date: 20090506
  Serious: Yes (Death, Hospitalization, Other)
  Sender: FDA-Public Use
  Company Number: US-ELI_LILLY_AND_COMPANY-US200810001282

PATIENT
  Sex: Female

DRUGS (8)
  1. FORTEO [Suspect]
     Indication: OSTEOPOROSIS
     Dates: start: 20040101, end: 20070101
  2. FOSAMAX [Concomitant]
     Indication: OSTEOPOROSIS
     Dosage: 70 MG, WEEKLY (1/W)
     Dates: start: 20070101, end: 20070801
  3. FOSAMAX [Concomitant]
     Dosage: 70 MG, WEEKLY (1/W)
     Dates: start: 20070101
  4. DECADRON                                /CAN/ [Concomitant]
     Indication: METASTASES TO CENTRAL NERVOUS SYSTEM
     Dosage: 2 MG, DAILY (1/D)
     Dates: end: 20040101
  5. DECADRON                                /CAN/ [Concomitant]
     Dosage: 2 MG, DAILY (1/D)
     Dates: start: 20070101, end: 20070822
  6. GABAPENTIN [Concomitant]
     Dosage: 300 MG, 2/D
  7. OSCAL [Concomitant]
     Dosage: UNK, 3/D
  8. TRAMADOL HCL [Concomitant]
     Dosage: 50 MG, AS NEEDED

REACTIONS (4)
  - FALL [None]
  - HIP FRACTURE [None]
  - METASTATIC RENAL CELL CARCINOMA [None]
  - RADIUS FRACTURE [None]
